FAERS Safety Report 25509224 (Version 1)
Quarter: 2025Q3

REPORT INFORMATION
  Report Type: Spontaneous
  Country: US (occurrence: None)
  Receive Date: 20250702
  Receipt Date: 20250702
  Transmission Date: 20251020
  Serious: Yes (Death)
  Sender: FDA-CTU
  Company Number: None

PATIENT
  Age: 70 Year
  Sex: Male
  Weight: 77 kg

DRUGS (1)
  1. HUMIRA [Suspect]
     Active Substance: ADALIMUMAB
     Dosage: 40MG/0.4ML ONCE WEEKLY SUBCUTANEOUS
     Route: 058
     Dates: start: 20250611, end: 20250628

REACTIONS (1)
  - Death [None]

NARRATIVE: CASE EVENT DATE: 20250628
